FAERS Safety Report 4666229-2 (Version None)
Quarter: 2005Q2

REPORT INFORMATION
  Report Type: 
  Country: None (occurrence: None)
  Receive Date: 20050519
  Receipt Date: 20050420
  Transmission Date: 20051028
  Serious: Yes (Hospitalization, Disabling, Other)
  Sender: FDA-Public Use
  Company Number: AU-BRISTOL-MYERS SQUIBB COMPANY-12939450

PATIENT
  Age: 33 Year
  Sex: Male

DRUGS (4)
  1. ABILIFY [Suspect]
     Indication: SCHIZOPHRENIA
     Route: 048
     Dates: start: 20041115, end: 20050417
  2. LUVOX [Concomitant]
     Indication: DEPRESSION
     Route: 048
     Dates: start: 20041115, end: 20050417
  3. CHLORPROMAZINE [Concomitant]
     Indication: PSYCHOTIC DISORDER
  4. CHLORPROMAZINE [Concomitant]
     Indication: HALLUCINATION, AUDITORY

REACTIONS (3)
  - CELLULITIS [None]
  - NEUROLEPTIC MALIGNANT SYNDROME [None]
  - PRESCRIBED OVERDOSE [None]
